FAERS Safety Report 9270224 (Version 1)
Quarter: 2013Q2

REPORT INFORMATION
  Report Type: Spontaneous
  Country: JP (occurrence: JP)
  Receive Date: 20130503
  Receipt Date: 20130503
  Transmission Date: 20140414
  Serious: Yes (Death)
  Sender: FDA-Public Use
  Company Number: JP-GLAXOSMITHKLINE-B0888706A

PATIENT
  Sex: Female

DRUGS (1)
  1. REVOLADE [Suspect]
     Indication: IDIOPATHIC THROMBOCYTOPENIC PURPURA
     Route: 048
     Dates: start: 20120528, end: 20120731

REACTIONS (2)
  - Pancreatic carcinoma [Fatal]
  - Abdominal discomfort [Unknown]
